FAERS Safety Report 4735690-7 (Version None)
Quarter: 2005Q3

REPORT INFORMATION
  Report Type: 
  Country: None (occurrence: None)
  Receive Date: 20050804
  Receipt Date: 20050725
  Transmission Date: 20060218
  Serious: Yes (Other)
  Sender: FDA-Public Use
  Company Number: 2005106717

PATIENT
  Age: 68 Year
  Sex: Female
  Weight: 77.1115 kg

DRUGS (5)
  1. AROMASIN [Suspect]
     Indication: BREAST CANCER
     Dosage: 25 MG (25 MG, DAILY), ORAL
     Route: 048
     Dates: start: 20050501
  2. FAMOTIDINE [Concomitant]
  3. NASONEX [Concomitant]
  4. CENTRUM SILVER (ASCORBIC ACID, CALCIUM, MINERALS NOS, RETINOL, TOCOPHE [Concomitant]
  5. ALVEVE (NAPROXEN SODIUM) [Concomitant]

REACTIONS (7)
  - BLISTER [None]
  - COELIAC DISEASE [None]
  - DERMATITIS HERPETIFORMIS [None]
  - FACE INJURY [None]
  - FALL [None]
  - JOINT INJURY [None]
  - MOUTH INJURY [None]
